FAERS Safety Report 5491077-3 (Version None)
Quarter: 2007Q4

REPORT INFORMATION
  Report Type: 
  Country: None (occurrence: None)
  Receive Date: 20071019
  Receipt Date: 20071015
  Transmission Date: 20080405
  Serious: Yes (Life-Threatening)
  Sender: FDA-Public Use
  Company Number: IL-SANOFI-SYNTHELABO-A01200711330

PATIENT
  Sex: Female

DRUGS (3)
  1. LEUCOVORIN [Concomitant]
     Indication: COLON CANCER
     Route: 042
  2. FLUOROURACIL [Concomitant]
     Indication: COLON CANCER
     Dosage: 640 MG IV BOLUS THEN 3800 MG CONTINUOUS INFUSION
     Route: 042
  3. ELOXATIN [Suspect]
     Indication: COLON CANCER
     Route: 042
     Dates: start: 20071007, end: 20071007

REACTIONS (2)
  - LARYNGOSPASM [None]
  - PARAESTHESIA [None]
